FAERS Safety Report 5081694-7 (Version None)
Quarter: 2006Q3

REPORT INFORMATION
  Report Type: 
  Country: None (occurrence: None)
  Receive Date: 20060816
  Receipt Date: 20060807
  Transmission Date: 20061208
  Serious: Yes (Death)
  Sender: FDA-Public Use
  Company Number: US-BOEHRINGER INGELHEIM PHARMACEUTICALS, INC.-2006-DE-04180GD

PATIENT
  Age: 6 Year
  Sex: Male

DRUGS (5)
  1. CLONIDINE [Suspect]
     Indication: ATTENTION DEFICIT/HYPERACTIVITY DISORDER
     Route: 048
  2. ASCORBIC ACID [Suspect]
     Route: 048
  3. LITHIUM [Suspect]
     Indication: BIPOLAR DISORDER
     Route: 048
  4. RISPERDAL [Suspect]
     Indication: BIPOLAR DISORDER
     Route: 048
  5. REMERON [Suspect]
     Indication: BIPOLAR DISORDER
     Route: 048

REACTIONS (1)
  - ACCIDENTAL EXPOSURE [None]
